FAERS Safety Report 6878125-0 (Version None)
Quarter: 2010Q2

REPORT INFORMATION
  Report Type: 
  Country: None (occurrence: None)
  Receive Date: 20100616
  Receipt Date: 20100318
  Transmission Date: 20101027
  Serious: No
  Sender: FDA-Public Use
  Company Number: DSA_42815_2010

PATIENT
  Sex: Male

DRUGS (4)
  1. XENAZINE [Suspect]
     Indication: HUNTINGTON'S CHOREA
     Dosage: 25 MG, ORAL
     Route: 048
     Dates: start: 20030101
  2. ARICEPT [Concomitant]
  3. SYNTHROID [Concomitant]
  4. IBUPROFEN [Concomitant]

REACTIONS (1)
  - NAUSEA [None]
